FAERS Safety Report 13689306 (Version 1)
Quarter: 2017Q2

REPORT INFORMATION
  Report Type: Spontaneous
  Country: US (occurrence: US)
  Receive Date: 20170625
  Receipt Date: 20170625
  Transmission Date: 20170830
  Serious: Yes (Disabling)
  Sender: FDA-Public Use
  Company Number: None

PATIENT
  Age: 52 Year
  Sex: Male
  Weight: 94.5 kg

DRUGS (2)
  1. XANAX [Suspect]
     Active Substance: ALPRAZOLAM
     Indication: PANIC ATTACK
     Dates: start: 20140901, end: 20141201
  2. MULTI-VITAMIN [Concomitant]
     Active Substance: .ALPHA.-TOCOPHEROL ACETATE, DL-\ASCORBIC ACID\CYANOCOBALAMIN\FLUORIDE ION\FOLIC ACID\NIACIN\PYRIDOXINE\RIBOFLAVIN\THIAMINE\VITAMIN A\VITAMIN D

REACTIONS (33)
  - Ventricular extrasystoles [None]
  - Memory impairment [None]
  - Fear of death [None]
  - Akathisia [None]
  - Depression [None]
  - Agoraphobia [None]
  - Mood swings [None]
  - Intrusive thoughts [None]
  - Insomnia [None]
  - Anxiety [None]
  - Restless legs syndrome [None]
  - Depersonalisation/derealisation disorder [None]
  - Fatigue [None]
  - Dyspnoea [None]
  - Chest pain [None]
  - Palpitations [None]
  - Dizziness [None]
  - Paraesthesia [None]
  - Skin burning sensation [None]
  - Heart rate increased [None]
  - Therapy cessation [None]
  - Bedridden [None]
  - Derealisation [None]
  - Tinnitus [None]
  - Parosmia [None]
  - Confusional state [None]
  - Adverse drug reaction [None]
  - Visual impairment [None]
  - Dysgeusia [None]
  - Pain in extremity [None]
  - Muscle twitching [None]
  - Seizure [None]
  - Hypoaesthesia [None]

NARRATIVE: CASE EVENT DATE: 20141201
